FAERS Safety Report 10264163 (Version 1)
Quarter: 2014Q2

REPORT INFORMATION
  Report Type: Spontaneous
  Country: US (occurrence: None)
  Receive Date: 20140623
  Receipt Date: 20140623
  Transmission Date: 20141212
  Serious: No
  Sender: FDA-Public Use
  Company Number: None

PATIENT
  Age: 48 Year
  Sex: 0

DRUGS (1)
  1. ADDERAL [Suspect]
     Indication: ATTENTION DEFICIT/HYPERACTIVITY DISORDER
     Dosage: 2 PILLS TWICE DAILY TAKEN BY MOUTH
     Route: 048
     Dates: start: 20140617, end: 20140622

REACTIONS (6)
  - Anxiety [None]
  - Lethargy [None]
  - Malaise [None]
  - Gastric disorder [None]
  - Drug ineffective [None]
  - Product substitution issue [None]
